FAERS Safety Report 4555988-5 (Version None)
Quarter: 2005Q1

REPORT INFORMATION
  Report Type: 
  Country: None (occurrence: None)
  Receive Date: 20050111
  Receipt Date: 20041018
  Transmission Date: 20050727
  Serious: Yes (Other)
  Sender: FDA-Public Use
  Company Number: PHEH2004US07384

PATIENT
  Age: 4 Year
  Sex: Female

DRUGS (2)
  1. ELIDEL [Suspect]
     Indication: ALOPECIA AREATA
     Dosage: TOPICAL
     Route: 061
     Dates: start: 20040210, end: 20040210
  2. CLOBESTASOL (CLOBESTASOL) [Concomitant]

REACTIONS (2)
  - HYPERSENSITIVITY [None]
  - URTICARIA [None]
